FAERS Safety Report 23433563 (Version 1)
Quarter: 2024Q1

REPORT INFORMATION
  Report Type: Spontaneous
  Country: US (occurrence: US)
  Receive Date: 20240123
  Receipt Date: 20240123
  Transmission Date: 20240410
  Serious: Yes (Hospitalization)
  Sender: FDA-Public Use
  Company Number: US-PFIZER INC-202300366370

PATIENT
  Age: 16 Year
  Sex: Female
  Weight: 58.97 kg

DRUGS (4)
  1. OXBRYTA [Suspect]
     Active Substance: VOXELOTOR
     Indication: Pain
     Dosage: 1500 MG, 1X/DAY, [3 TABLETS, ONCE DAILY, ORALLY]
     Route: 048
     Dates: start: 20230927
  2. OXBRYTA [Suspect]
     Active Substance: VOXELOTOR
     Dosage: 500 MG; 3 TABS DAILY PO (ORAL)
     Route: 048
  3. AMOXICILLIN [Concomitant]
     Active Substance: AMOXICILLIN
     Dosage: 875 MG
  4. ERYTHROMYCIN [Concomitant]
     Active Substance: ERYTHROMYCIN
     Dosage: 250 MG

REACTIONS (1)
  - Sickle cell anaemia with crisis [Unknown]
